FAERS Safety Report 13322870 (Version 1)
Quarter: 2017Q1

REPORT INFORMATION
  Report Type: Spontaneous
  Country: NL (occurrence: NL)
  Receive Date: 20170309
  Receipt Date: 20170309
  Transmission Date: 20170428
  Serious: Yes (Other)
  Sender: FDA-Public Use
  Company Number: NL-GUERBET LLC-1064019

PATIENT
  Age: 68 Year
  Sex: Female

DRUGS (2)
  1. LIPIODOL [Suspect]
     Active Substance: ETHIODIZED OIL
     Indication: THERAPEUTIC EMBOLISATION
  2. CYANOACRYLATE GLUE [Concomitant]
     Active Substance: OCRYLATE

REACTIONS (3)
  - Embolism venous [Unknown]
  - Intracardiac thrombus [Recovered/Resolved]
  - Off label use [Unknown]
